FAERS Safety Report 22132569 (Version 1)
Quarter: 2023Q1

REPORT INFORMATION
  Report Type: Spontaneous
  Country: US (occurrence: US)
  Receive Date: 20230323
  Receipt Date: 20230323
  Transmission Date: 20230417
  Serious: No
  Sender: FDA-Public Use
  Company Number: US-ALLERGAN-2234941US

PATIENT
  Age: 70 Year
  Sex: Female
  Weight: 58.966 kg

DRUGS (4)
  1. LINZESS [Suspect]
     Active Substance: LINACLOTIDE
     Indication: Constipation
     Dosage: 145 ?G, BID
     Route: 048
     Dates: start: 20221003, end: 20221007
  2. LINZESS [Suspect]
     Active Substance: LINACLOTIDE
     Dosage: 145 ?G, QD
     Route: 048
     Dates: start: 20221001, end: 202210
  3. LACTULOSE [Concomitant]
     Active Substance: LACTULOSE
     Indication: Constipation
  4. PFIZER-BIONTECH COVID-19 VACCINE [Concomitant]
     Active Substance: TOZINAMERAN
     Indication: COVID-19 immunisation
     Dosage: UNK

REACTIONS (2)
  - Drug ineffective [Unknown]
  - Physical product label issue [Unknown]

NARRATIVE: CASE EVENT DATE: 20221002
